FAERS Safety Report 19020691 (Version 2)
Quarter: 2021Q1

REPORT INFORMATION
  Report Type: Report from Study
  Country: GB (occurrence: GB)
  Receive Date: 20210317
  Receipt Date: 20210329
  Transmission Date: 20210420
  Serious: Yes (Other)
  Sender: FDA-Public Use
  Company Number: NVSC2021GB055911

PATIENT
  Sex: Male

DRUGS (4)
  1. HYRIMOZ [Suspect]
     Active Substance: ADALIMUMAB-ADAZ
     Dosage: 40 MG (EVERY OTHER WEEK)
     Route: 058
  2. HYRIMOZ [Suspect]
     Active Substance: ADALIMUMAB-ADAZ
     Indication: INFLAMMATORY BOWEL DISEASE
     Dosage: 80 MG (WEEK 2)
     Route: 065
  3. HYRIMOZ [Suspect]
     Active Substance: ADALIMUMAB-ADAZ
     Dosage: 40 MG (WEEK 4)
     Route: 065
  4. HYRIMOZ [Suspect]
     Active Substance: ADALIMUMAB-ADAZ
     Indication: COLITIS ULCERATIVE
     Dosage: 160 MG (LOADING DOSE) (WEEK 0)
     Route: 065
     Dates: start: 20210219

REACTIONS (3)
  - Haematochezia [Not Recovered/Not Resolved]
  - Faeces hard [Unknown]
  - Bowel movement irregularity [Unknown]
